FAERS Safety Report 19433155 (Version 1)
Quarter: 2021Q2

REPORT INFORMATION
  Report Type: Spontaneous
  Country: US (occurrence: US)
  Receive Date: 20210617
  Receipt Date: 20210617
  Transmission Date: 20210717
  Serious: Yes (Hospitalization)
  Sender: FDA-Public Use
  Company Number: None

PATIENT
  Age: 33 Year
  Sex: Female

DRUGS (18)
  1. PROMETHAZINE [Concomitant]
     Active Substance: PROMETHAZINE HYDROCHLORIDE
  2. TORSEMIDE. [Concomitant]
     Active Substance: TORSEMIDE
  3. BUTA/APAP/CAF [Concomitant]
  4. TADALAFIL 20MG TAB [Suspect]
     Active Substance: TADALAFIL
     Indication: PULMONARY HYPERTENSION
     Dosage: OTHER FREQUENCY:QPM;?
     Route: 048
     Dates: start: 20210129, end: 20210616
  5. FLORANEX [Concomitant]
     Active Substance: LACTOBACILLUS ACIDOPHILUS\LACTOBACILLUS DELBRUECKII SUBSP. BULGARICUS
  6. METOCLOPRAM [Concomitant]
     Active Substance: METOCLOPRAMIDE
  7. SPIRONOLACT [Concomitant]
     Active Substance: SPIRONOLACTONE
  8. AMOX/K CLAV [Concomitant]
     Active Substance: AMOXICILLIN\CLAVULANATE POTASSIUM
  9. DIGOXIN. [Concomitant]
     Active Substance: DIGOXIN
  10. FLUCONAZOLE. [Concomitant]
     Active Substance: FLUCONAZOLE
  11. PREDNISONE. [Concomitant]
     Active Substance: PREDNISONE
  12. DIPHEN/ATROP [Concomitant]
     Active Substance: ATROPINE SULFATE\DIPHENOXYLATE
  13. DULOXETINE. [Concomitant]
     Active Substance: DULOXETINE
  14. FEROSUL [Concomitant]
     Active Substance: FERROUS SULFATE
  15. ONDANSETRON [Concomitant]
     Active Substance: ONDANSETRON
  16. POT CHLORIDE ER [Concomitant]
  17. METRONIZAZOL [Concomitant]
  18. SMZ/TMP DS [Concomitant]
     Active Substance: SULFAMETHOXAZOLE\TRIMETHOPRIM

REACTIONS (1)
  - Lung transplant [None]

NARRATIVE: CASE EVENT DATE: 20210515
